FAERS Safety Report 6144953-2 (Version None)
Quarter: 2009Q2

REPORT INFORMATION
  Report Type: 
  Country: None (occurrence: None)
  Receive Date: 20090402
  Receipt Date: 20090402
  Transmission Date: 20091009
  Serious: Yes (Hospitalization)
  Sender: FDA-Public Use
  Company Number: None

PATIENT
  Age: 34 Year
  Sex: Female
  Weight: 43.0917 kg

DRUGS (2)
  1. METOCLOPRAMIDE [Suspect]
     Indication: NAUSEA
     Dosage: 10 MG 3X DAY PO
     Route: 048
     Dates: start: 20081217, end: 20081219
  2. METOCLOPRAMIDE [Suspect]
     Indication: VOMITING
     Dosage: 10 MG 3X DAY PO
     Route: 048
     Dates: start: 20081217, end: 20081219

REACTIONS (5)
  - BRUXISM [None]
  - DYSARTHRIA [None]
  - DYSTONIA [None]
  - MUSCLE TWITCHING [None]
  - RESTLESSNESS [None]
